FAERS Safety Report 7655582-3 (Version None)
Quarter: 2011Q3

REPORT INFORMATION
  Report Type: 
  Country: None (occurrence: None)
  Receive Date: 20110804
  Receipt Date: 20110726
  Transmission Date: 20111222
  Serious: Yes (Other)
  Sender: FDA-Public Use
  Company Number: PHHY2010DE40498

PATIENT
  Sex: Male

DRUGS (2)
  1. RITALIN LA [Suspect]
     Dosage: 50 MG, QD
     Route: 048
     Dates: start: 20100301, end: 20110501
  2. CONCERTA [Suspect]
     Dosage: UNK UKN, UNK
     Dates: end: 20110501

REACTIONS (7)
  - HEADACHE [None]
  - SUPRAVENTRICULAR TACHYCARDIA [None]
  - SINOATRIAL BLOCK [None]
  - NAUSEA [None]
  - PALPITATIONS [None]
  - DISTURBANCE IN ATTENTION [None]
  - BLOOD PRESSURE INCREASED [None]
